FAERS Safety Report 4808708-0 (Version None)
Quarter: 2005Q4

REPORT INFORMATION
  Report Type: 
  Country: None (occurrence: None)
  Receive Date: 20051021
  Receipt Date: 20020626
  Transmission Date: 20060501
  Serious: No
  Sender: FDA-Public Use
  Company Number: CA_020705211

PATIENT
  Age: 29 Year
  Sex: Male

DRUGS (2)
  1. ZYPREXA [Suspect]
     Dosage: 20 MG/DAY
     Route: 048
     Dates: start: 20020612
  2. VENLAFAXINE [Concomitant]

REACTIONS (1)
  - LEUKOCYTOSIS [None]
